FAERS Safety Report 6291580-2 (Version None)
Quarter: 2009Q3

REPORT INFORMATION
  Report Type: 
  Country: None (occurrence: None)
  Receive Date: 20090730
  Receipt Date: 20090723
  Transmission Date: 20100115
  Serious: Yes (Death, Hospitalization, Other)
  Sender: FDA-Public Use
  Company Number: PHHY2009AU28653

PATIENT
  Sex: Female

DRUGS (10)
  1. CLOZARIL [Suspect]
     Indication: SCHIZOPHRENIA
     Dosage: UNK
     Dates: start: 20010920
  2. CLOZARIL [Suspect]
     Dosage: 550 MG
  3. CLOZARIL [Suspect]
     Dosage: 650 MG
  4. CLOZARIL [Suspect]
     Dosage: 700 MG
     Route: 048
  5. CLOZARIL [Suspect]
     Dosage: UNK
     Dates: end: 20090714
  6. EFFEXOR [Concomitant]
  7. PARIET [Concomitant]
  8. RISPERDAL [Concomitant]
  9. TEMAZE [Concomitant]
  10. VALIUM [Concomitant]

REACTIONS (3)
  - ACUTE MYOCARDIAL INFARCTION [None]
  - BLOOD CHOLESTEROL INCREASED [None]
  - CHEST PAIN [None]
